FAERS Safety Report 9983778 (Version 5)
Quarter: 2015Q2

REPORT INFORMATION
  Report Type: Spontaneous
  Country: US (occurrence: US)
  Receive Date: 20140307
  Receipt Date: 20150415
  Transmission Date: 20150821
  Serious: Yes (Hospitalization, Other)
  Sender: FDA-Public Use
  Company Number: US-GLAXOSMITHKLINE-A1063780A

PATIENT
  Age: 65 Year
  Sex: Male
  Weight: 72.7 kg

DRUGS (17)
  1. BACTRIM [Concomitant]
     Active Substance: SULFAMETHOXAZOLE\TRIMETHOPRIM
     Indication: PROPHYLAXIS
  2. ZOFRAN [Concomitant]
     Active Substance: ONDANSETRON HYDROCHLORIDE
  3. PROTONIX [Concomitant]
     Active Substance: PANTOPRAZOLE SODIUM
  4. EMEND [Concomitant]
     Active Substance: APREPITANT
  5. NORCO [Concomitant]
     Active Substance: ACETAMINOPHEN\HYDROCODONE BITARTRATE
  6. NEULASTA [Concomitant]
     Active Substance: PEGFILGRASTIM
  7. ACYCLOVIR. [Concomitant]
     Active Substance: ACYCLOVIR
     Indication: PROPHYLAXIS
  8. CIPRO [Concomitant]
     Active Substance: CIPROFLOXACIN HYDROCHLORIDE
  9. MELPHALAN [Suspect]
     Active Substance: MELPHALAN
     Indication: HAEMATOPOIETIC STEM CELL MOBILISATION
     Dosage: 200 MG/M2 TWICE
     Route: 042
     Dates: start: 20130812
  10. DEXAMETHASONE. [Suspect]
     Active Substance: DEXAMETHASONE
     Indication: PLASMA CELL MYELOMA
     Dosage: 4 CYCLES
     Route: 065
     Dates: start: 20130408
  11. SANCUSO PATCH [Concomitant]
  12. COMPAZINE [Concomitant]
     Active Substance: PROCHLORPERAZINE MALEATE
  13. PEN VEE K [Concomitant]
  14. REVLIMID [Suspect]
     Active Substance: LENALIDOMIDE
     Indication: PLASMA CELL MYELOMA
     Dosage: 4 CYCLES
     Route: 065
     Dates: start: 20130408, end: 20130712
  15. MAGNESIUM [Concomitant]
     Active Substance: MAGNESIUM
  16. VELCADE [Suspect]
     Active Substance: BORTEZOMIB
     Indication: PLASMA CELL MYELOMA
     Dosage: 4 CYCLES
     Route: 065
     Dates: start: 20130408, end: 20130712
  17. DIFLUCAN [Concomitant]
     Active Substance: FLUCONAZOLE
     Indication: PROPHYLAXIS

REACTIONS (15)
  - Chills [Recovered/Resolved]
  - Drug ineffective [Unknown]
  - Rash [Recovered/Resolved]
  - Engraftment syndrome [Recovered/Resolved]
  - Lung infiltration [Recovered/Resolved]
  - Pruritus [Recovered/Resolved]
  - Infection [Recovered/Resolved]
  - Dermatitis contact [Recovered/Resolved]
  - Pyrexia [Recovered/Resolved]
  - Feeling hot [Recovered/Resolved]
  - Rash maculo-papular [Recovered/Resolved]
  - Deep vein thrombosis [Recovered/Resolved]
  - Rash papular [Recovered/Resolved]
  - Atelectasis [Recovered/Resolved]
  - Pneumonia [Recovered/Resolved]

NARRATIVE: CASE EVENT DATE: 201305
